FAERS Safety Report 17203261 (Version 2)
Quarter: 2020Q1

REPORT INFORMATION
  Report Type: Spontaneous
  Country: US (occurrence: US)
  Receive Date: 20191226
  Receipt Date: 20200130
  Transmission Date: 20200409
  Serious: Yes (Hospitalization)
  Sender: FDA-Public Use
  Company Number: US-SHIRE-US201944496

PATIENT
  Sex: Female
  Weight: 45.35 kg

DRUGS (3)
  1. GATTEX [Suspect]
     Active Substance: TEDUGLUTIDE\WATER
     Indication: SHORT-BOWEL SYNDROME
     Dosage: 2.32 MILLIGRAM, 1X/DAY:QD
     Route: 058
     Dates: start: 201404
  2. METHOTREXATE [METHOTREXATE SODIUM] [Concomitant]
     Active Substance: METHOTREXATE SODIUM
     Indication: PRODUCT USED FOR UNKNOWN INDICATION
     Route: 065
  3. GATTEX [Suspect]
     Active Substance: TEDUGLUTIDE\WATER
     Dosage: 2.32 MILLIGRAM, 1X/DAY:QD
     Route: 058
     Dates: start: 20151109

REACTIONS (1)
  - Oropharyngeal dysplasia [Not Recovered/Not Resolved]

NARRATIVE: CASE EVENT DATE: 2014
